FAERS Safety Report 7963866-4 (Version None)
Quarter: 2011Q4

REPORT INFORMATION
  Report Type: 
  Country: None (occurrence: None)
  Receive Date: 20111208
  Receipt Date: 20111129
  Transmission Date: 20120403
  Serious: No
  Sender: FDA-Public Use
  Company Number: US-BAYER-2011-114529

PATIENT
  Sex: Male

DRUGS (5)
  1. COQ10 [Concomitant]
  2. VOLTAREN [Concomitant]
  3. EXELON [Concomitant]
  4. LEVITRA [Suspect]
  5. ACETAMINOPHEN PM [Concomitant]

REACTIONS (1)
  - ADVERSE EVENT [None]
